FAERS Safety Report 13260889 (Version 1)
Quarter: 2017Q1

REPORT INFORMATION
  Report Type: Report from Study
  Country: JP (occurrence: JP)
  Receive Date: 20170222
  Receipt Date: 20170222
  Transmission Date: 20170428
  Serious: Yes (Hospitalization, Other)
  Sender: FDA-Public Use
  Company Number: JP-GILEAD-2017-0258621

PATIENT
  Age: 1 Year
  Sex: Female
  Weight: 6 kg

DRUGS (36)
  1. DOPAMINE HYDROCHLORIDE. [Concomitant]
     Active Substance: DOPAMINE HYDROCHLORIDE
     Dosage: UNK
     Dates: start: 20150124, end: 20150124
  2. DOBUTAMINE HYDROCHLORIDE. [Concomitant]
     Active Substance: DOBUTAMINE HYDROCHLORIDE
     Indication: POSTOPERATIVE CARE
     Dosage: UNK
     Dates: end: 20150116
  3. DEXMEDETOMIDINE HYDROCHLORIDE. [Concomitant]
     Active Substance: DEXMEDETOMIDINE HYDROCHLORIDE
     Dosage: UNK
     Dates: start: 20150124, end: 20150124
  4. MIDAZOLAM [Concomitant]
     Active Substance: MIDAZOLAM HYDROCHLORIDE
     Dosage: UNK
     Dates: start: 20150124, end: 20150124
  5. DIPYRIDAMOLE. [Concomitant]
     Active Substance: DIPYRIDAMOLE
     Indication: PULMONARY ARTERIAL HYPERTENSION
     Dosage: UNK
     Dates: start: 20150116
  6. ZINC OXIDE                         /00478901/ [Concomitant]
     Indication: PROPHYLAXIS
     Dosage: UNK
  7. KETAMINE HYDROCHLORIDE. [Concomitant]
     Active Substance: KETAMINE HYDROCHLORIDE
     Dosage: UNK
     Dates: start: 20150128, end: 20150128
  8. LIDOCAINE HYDROCHLORIDE. [Concomitant]
     Active Substance: LIDOCAINE HYDROCHLORIDE
     Indication: MEDICAL PROCEDURE
     Dosage: UNK
     Dates: start: 20150128, end: 20150130
  9. MIDAZOLAM [Concomitant]
     Active Substance: MIDAZOLAM HYDROCHLORIDE
     Dosage: UNK
     Dates: start: 20150128, end: 20150128
  10. AMBRISENTAN [Suspect]
     Active Substance: AMBRISENTAN
     Indication: PULMONARY ARTERIAL HYPERTENSION
     Dosage: 0.3 MG, QD
     Route: 048
     Dates: start: 20150113, end: 20150217
  11. SPIRONOLACTONE. [Concomitant]
     Active Substance: SPIRONOLACTONE
     Indication: PULMONARY ARTERIAL HYPERTENSION
     Dosage: UNK
  12. LANSOPRAZOLE. [Concomitant]
     Active Substance: LANSOPRAZOLE
     Indication: POSTOPERATIVE CARE
     Dosage: UNK
     Dates: end: 20150114
  13. KETAMINE HYDROCHLORIDE. [Concomitant]
     Active Substance: KETAMINE HYDROCHLORIDE
     Indication: MEDICAL PROCEDURE
     Dosage: UNK
     Dates: start: 20150124, end: 20150124
  14. BICARBON                           /00049401/ [Concomitant]
     Dosage: UNK
     Dates: start: 20150124, end: 20150124
  15. ZYVOX [Suspect]
     Active Substance: LINEZOLID
     Indication: PRODUCT USED FOR UNKNOWN INDICATION
     Dosage: UNK
     Route: 065
     Dates: start: 20150122, end: 20150130
  16. DEXMEDETOMIDINE HYDROCHLORIDE. [Concomitant]
     Active Substance: DEXMEDETOMIDINE HYDROCHLORIDE
     Indication: MEDICAL PROCEDURE
     Dosage: UNK
     Dates: start: 20150114, end: 20150114
  17. INSULIN HUMAN [Concomitant]
     Active Substance: INSULIN HUMAN
     Indication: POSTOPERATIVE CARE
     Dosage: UNK
     Dates: start: 20150114, end: 20150114
  18. THIOPENTAL SODIUM. [Concomitant]
     Active Substance: THIOPENTAL SODIUM
     Indication: PROPHYLAXIS
     Dosage: UNK
     Dates: start: 20150120, end: 20150120
  19. MIDAZOLAM [Concomitant]
     Active Substance: MIDAZOLAM HYDROCHLORIDE
     Indication: MEDICAL PROCEDURE
     Dosage: UNK
     Dates: start: 20150116, end: 20150116
  20. FENTANYL CITRATE. [Concomitant]
     Active Substance: FENTANYL CITRATE
     Indication: MEDICAL PROCEDURE
     Dosage: UNK
     Dates: start: 20150124, end: 20150124
  21. AMBRISENTAN [Suspect]
     Active Substance: AMBRISENTAN
     Dosage: 0.15 MG, QD
     Route: 048
     Dates: start: 20150218, end: 20150224
  22. TEICOPLANIN [Suspect]
     Active Substance: TEICOPLANIN
     Indication: PRODUCT USED FOR UNKNOWN INDICATION
     Dosage: UNK
     Route: 065
     Dates: start: 20150130, end: 20150211
  23. ADCIRCA [Concomitant]
     Active Substance: TADALAFIL
     Indication: PULMONARY ARTERIAL HYPERTENSION
     Dosage: UNK
     Dates: start: 20150111
  24. GLUCONSAN K [Concomitant]
     Indication: PULMONARY ARTERIAL HYPERTENSION
     Dosage: UNK
     Dates: end: 20150217
  25. NEOLAMIN MULTI V [Concomitant]
     Active Substance: HYDROXOCOBALAMIN\PYRIDOXINE HYDROCHLORIDE\THIAMINE HYDROCHLORIDE
     Indication: POSTOPERATIVE CARE
     Dosage: UNK
     Dates: end: 20150116
  26. ANTIBIOTICS-RESISTANT LACTIC ACID BACTERIAE [Concomitant]
     Active Substance: UNSPECIFIED INGREDIENT
     Dosage: UNK
     Dates: start: 20150201
  27. THIOPENTAL SODIUM. [Concomitant]
     Active Substance: THIOPENTAL SODIUM
     Dosage: UNK
     Dates: start: 20150213, end: 20150215
  28. PALIVIZUMAB RECOMBINANT [Concomitant]
     Indication: PROPHYLAXIS
     Dosage: UNK
     Dates: start: 20150131, end: 20150131
  29. DOPAMINE HYDROCHLORIDE. [Concomitant]
     Active Substance: DOPAMINE HYDROCHLORIDE
     Indication: POSTOPERATIVE CARE
     Dosage: UNK
     Dates: start: 20150114, end: 20150114
  30. PLEAMIN P [Concomitant]
     Dosage: UNK
     Dates: start: 20150114, end: 20150116
  31. MEYLON [Concomitant]
     Active Substance: SODIUM BICARBONATE
     Indication: MEDICAL PROCEDURE
     Dosage: UNK
     Dates: start: 20150124, end: 20150124
  32. WHITE PETROLATUM [Concomitant]
     Active Substance: PETROLATUM
     Indication: PROPHYLAXIS
     Dosage: UNK
     Dates: start: 20150202
  33. FUROSEMIDE. [Suspect]
     Active Substance: FUROSEMIDE
     Indication: PULMONARY ARTERIAL HYPERTENSION
     Dosage: UNK
     Route: 065
  34. INCREMIN                           /00023544/ [Concomitant]
     Dosage: UNK
  35. CEFAZOLIN SODIUM. [Concomitant]
     Active Substance: CEFAZOLIN SODIUM
     Indication: POSTOPERATIVE CARE
     Dosage: UNK
     Dates: end: 20150117
  36. BICARBON                           /00049401/ [Concomitant]
     Indication: MEDICAL PROCEDURE
     Dosage: UNK
     Dates: start: 20150120, end: 20150120

REACTIONS (14)
  - Pericardial effusion [Recovered/Resolved]
  - Rhinorrhoea [Recovered/Resolved]
  - Erythema [Recovered/Resolved]
  - Off label use [Recovered/Resolved]
  - Wound dehiscence [Recovered/Resolved]
  - White blood cell count decreased [Recovered/Resolved]
  - Rash [Recovered/Resolved]
  - Chylothorax [Recovered/Resolved]
  - Hepatic function abnormal [Recovered/Resolved]
  - Diarrhoea [Recovered/Resolved]
  - Mediastinitis [Recovered/Resolved]
  - Hypokalaemia [Recovered/Resolved]
  - Catheter site erythema [Recovered/Resolved]
  - Anaemia [Recovered/Resolved]

NARRATIVE: CASE EVENT DATE: 20150113
